FAERS Safety Report 16775327 (Version 2)
Quarter: 2019Q4

REPORT INFORMATION
  Report Type: Report from Study
  Country: BR (occurrence: BR)
  Receive Date: 20190905
  Receipt Date: 20191102
  Transmission Date: 20200122
  Serious: Yes (Hospitalization, Disabling)
  Sender: FDA-Public Use
  Company Number: PHHY2019BR204397

PATIENT
  Age: 57 Year
  Sex: Female
  Weight: 89 kg

DRUGS (1)
  1. SANDOSTATIN LAR DEPOT [Suspect]
     Active Substance: OCTREOTIDE ACETATE
     Indication: ACROMEGALY
     Dosage: 40 MG, UNK
     Route: 030
     Dates: start: 20110101

REACTIONS (13)
  - Gait disturbance [Not Recovered/Not Resolved]
  - Pain [Unknown]
  - Movement disorder [Not Recovered/Not Resolved]
  - Haemorrhagic stroke [Recovered/Resolved with Sequelae]
  - Dysstasia [Not Recovered/Not Resolved]
  - Anal incontinence [Not Recovered/Not Resolved]
  - Appendix disorder [Recovered/Resolved with Sequelae]
  - Abdominal infection [Unknown]
  - Gastrointestinal neoplasm [Unknown]
  - Bedridden [Not Recovered/Not Resolved]
  - Dysarthria [Not Recovered/Not Resolved]
  - Pancreatic mass [Not Recovered/Not Resolved]
  - Complicated appendicitis [Recovered/Resolved with Sequelae]

NARRATIVE: CASE EVENT DATE: 2017
